FAERS Safety Report 15728861 (Version 1)
Quarter: 2018Q4

REPORT INFORMATION
  Report Type: Spontaneous
  Country: RU (occurrence: RU)
  Receive Date: 20181217
  Receipt Date: 20181217
  Transmission Date: 20190205
  Serious: Yes (Other)
  Sender: FDA-Public Use
  Company Number: RU-ASTRAZENECA-2018SF63594

PATIENT
  Age: 3 Year
  Sex: Male

DRUGS (1)
  1. PULMICORT TURBUHALER [Suspect]
     Active Substance: BUDESONIDE
     Indication: CROUP INFECTIOUS
     Dosage: DOSAGE 1MG AND IN 30 MINUTES 1 MG MORE, TOTALLY, 2 MG PER DAY
     Route: 055

REACTIONS (2)
  - Pneumonia [Unknown]
  - Drug ineffective [Unknown]
